FAERS Safety Report 9918697 (Version 1)
Quarter: 2014Q1

REPORT INFORMATION
  Report Type: Report from Study
  Country: FR (occurrence: FR)
  Receive Date: 20140224
  Receipt Date: 20140224
  Transmission Date: 20141002
  Serious: Yes (Hospitalization)
  Sender: FDA-Public Use
  Company Number: FR-ROCHE-1349301

PATIENT
  Sex: Male
  Weight: 95 kg

DRUGS (2)
  1. OBINUTUZUMAB [Suspect]
     Indication: CHRONIC LYMPHOCYTIC LEUKAEMIA
     Dosage: ON 31/JAN/2014, DATE OF MOST RECENT DOSE
     Route: 042
     Dates: start: 20140123
  2. BENDAMUSTINE [Suspect]
     Indication: CHRONIC LYMPHOCYTIC LEUKAEMIA
     Dosage: ON 24/JAN/2014, DATE OF MOST RECENT DOSE
     Route: 042
     Dates: start: 20140123

REACTIONS (1)
  - Febrile neutropenia [Unknown]
